FAERS Safety Report 7643998-0 (Version None)
Quarter: 2011Q3

REPORT INFORMATION
  Report Type: 
  Country: None (occurrence: None)
  Receive Date: 20110729
  Receipt Date: 20101022
  Transmission Date: 20111222
  Serious: No
  Sender: FDA-Public Use
  Company Number: US-GLAXOSMITHKLINE-A0888333A

PATIENT
  Age: 7 Month
  Sex: Female

DRUGS (2)
  1. NO CONCURRENT MEDICATION [Concomitant]
  2. RANITIDINE [Suspect]
     Indication: GASTROOESOPHAGEAL REFLUX DISEASE
     Dosage: 75MG TWICE PER DAY
     Route: 048
     Dates: start: 20100601, end: 20101022

REACTIONS (7)
  - MUSCULOSKELETAL STIFFNESS [None]
  - MUSCLE RIGIDITY [None]
  - DRUG DISPENSING ERROR [None]
  - MASKED FACIES [None]
  - OVERDOSE [None]
  - OPISTHOTONUS [None]
  - DYSKINESIA [None]
